FAERS Safety Report 9859398 (Version 2)
Quarter: 2014Q4

REPORT INFORMATION
  Report Type: Spontaneous
  Country: DE (occurrence: None)
  Receive Date: 20140128
  Receipt Date: 20141208
  Transmission Date: 20150529
  Serious: Yes (Hospitalization)
  Sender: FDA-Public Use
  Company Number: 7264287

PATIENT
  Age: 69 Year
  Sex: Female
  Weight: 91 kg

DRUGS (4)
  1. L-THYROXINE [Suspect]
     Active Substance: LEVOTHYROXINE
     Indication: HYPOTHYROIDISM
     Route: 048
     Dates: start: 20080315
  2. NEPRESOL /00017902/ [Suspect]
     Active Substance: DIHYDRALAZINE SULFATE
     Indication: HYPERTENSION
     Route: 048
     Dates: start: 20100910
  3. BISOPROLOL FUMARATE. [Suspect]
     Active Substance: BISOPROLOL FUMARATE
     Indication: HYPERTENSION
     Dosage: ORAL
     Route: 048
     Dates: start: 20080315
  4. AROMASIN [Suspect]
     Active Substance: EXEMESTANE
     Indication: BREAST CANCER FEMALE
     Route: 048
     Dates: start: 20101216

REACTIONS (2)
  - Hydronephrosis [None]
  - Urinary tract infection [None]

NARRATIVE: CASE EVENT DATE: 20101221
